FAERS Safety Report 15738423 (Version 1)
Quarter: 2018Q4

REPORT INFORMATION
  Report Type: Spontaneous
  Country: US (occurrence: US)
  Receive Date: 20181219
  Receipt Date: 20181219
  Transmission Date: 20190205
  Serious: No
  Sender: FDA-Public Use
  Company Number: US-AUROBINDO-AUR-APU-2018-018733

PATIENT
  Sex: Female

DRUGS (1)
  1. CITALOPRAM [Suspect]
     Active Substance: CITALOPRAM HYDROBROMIDE
     Indication: ABNORMAL BEHAVIOUR
     Route: 048

REACTIONS (4)
  - Tearfulness [Unknown]
  - Anxiety [Unknown]
  - Disturbance in attention [Unknown]
  - Irritability [Unknown]
